FAERS Safety Report 7204559-0 (Version None)
Quarter: 2010Q4

REPORT INFORMATION
  Report Type: 
  Country: None (occurrence: None)
  Receive Date: 20101230
  Receipt Date: 20101220
  Transmission Date: 20110411
  Serious: Yes (Hospitalization, Other)
  Sender: FDA-Public Use
  Company Number: PHHO2010DE19279

PATIENT
  Sex: Female
  Weight: 71 kg

DRUGS (15)
  1. CERTICAN [Suspect]
     Indication: HEART TRANSPLANT
     Dosage: UNK
     Route: 048
     Dates: start: 20090711, end: 20100903
  2. CERTICAN [Suspect]
     Dosage: 0.75MG AND 1.0MG PER DAY
     Route: 048
     Dates: start: 20100903, end: 20101220
  3. SANDIMMUNE [Suspect]
     Indication: HEART TRANSPLANT
     Dosage: 50 MG, BID
     Route: 048
  4. SANDIMMUNE [Suspect]
     Dosage: 25 MG IN THE MORNING
     Route: 048
  5. PREDNISOLONE [Concomitant]
     Indication: HEART TRANSPLANT
     Dosage: 10 MG IN THE MORNING
     Route: 048
  6. PANTOPRAZOLE [Concomitant]
  7. MAGNESIUM [Concomitant]
  8. TORSEMIDE [Concomitant]
  9. KALIUM RETARD [Concomitant]
  10. ACTONEL [Concomitant]
  11. SIMVASTATIN [Concomitant]
  12. VEROSPIRON [Concomitant]
  13. IDEOS [Concomitant]
  14. VOTUM [Concomitant]
  15. ACETYLSALICYLIC ACID SRT [Concomitant]

REACTIONS (6)
  - ANAEMIA [None]
  - CONCOMITANT DISEASE PROGRESSION [None]
  - DIABETES MELLITUS [None]
  - PULMONARY EMBOLISM [None]
  - RENAL FAILURE [None]
  - TRICUSPID VALVE INCOMPETENCE [None]
